FAERS Safety Report 9128029 (Version 2)
Quarter: 2013Q1

REPORT INFORMATION
  Report Type: Spontaneous
  Country: US (occurrence: US)
  Receive Date: 20130228
  Receipt Date: 20130318
  Transmission Date: 20140127
  Serious: No
  Sender: FDA-Public Use
  Company Number: US-PFIZER INC-2013068519

PATIENT
  Age: 50 Year
  Sex: Female

DRUGS (2)
  1. CORTEF [Suspect]
     Indication: ADDISON^S DISEASE
     Dosage: 10 MG, EVERY AM, 5 MG EVERY PM
  2. CORTEF [Suspect]
     Dosage: 100 MG, DAILY PRN

REACTIONS (2)
  - Weight increased [Unknown]
  - Bone loss [Unknown]
